FAERS Safety Report 23301324 (Version 4)
Quarter: 2024Q2

REPORT INFORMATION
  Report Type: Spontaneous
  Country: JP (occurrence: None)
  Receive Date: 20231215
  Receipt Date: 20240628
  Transmission Date: 20240715
  Serious: Yes (Death, Hospitalization)
  Sender: FDA-Public Use
  Company Number: 2023A282667

PATIENT
  Age: 49 Year
  Sex: Male
  Weight: 95 kg

DRUGS (17)
  1. TEZSPIRE [Suspect]
     Active Substance: TEZEPELUMAB-EKKO
     Indication: Asthma
     Route: 058
     Dates: start: 20230522, end: 20231120
  2. TRELEGY ELLIPTA [Concomitant]
     Active Substance: FLUTICASONE FUROATE\UMECLIDINIUM BROMIDE\VILANTEROL TRIFENATATE
     Route: 055
  3. CARBOCYSTEINE [Concomitant]
     Active Substance: CARBOCYSTEINE
  4. MONTELUKAST [Concomitant]
     Active Substance: MONTELUKAST SODIUM
     Dosage: BEFORE BEDTIME
  5. ASTOMIN [Concomitant]
     Route: 048
  6. XYZAL [Concomitant]
     Active Substance: LEVOCETIRIZINE DIHYDROCHLORIDE
     Route: 048
  7. OPISEZOL CODEINE [Concomitant]
     Route: 048
  8. NICORANDIL [Concomitant]
     Active Substance: NICORANDIL
     Dosage: IN THE MORNING AND EVENING
  9. HERBESSER [Concomitant]
     Active Substance: DILTIAZEM HYDROCHLORIDE
     Dosage: IN THE MORNING AND EVENING
  10. ROSUVASTATIN CALCIUM [Concomitant]
     Active Substance: ROSUVASTATIN CALCIUM
     Route: 048
  11. JARDIANCE [Concomitant]
     Active Substance: EMPAGLIFLOZIN
  12. METGLUCO [Concomitant]
     Active Substance: METFORMIN HYDROCHLORIDE
     Dosage: IN THE MORNING AND EVENING
     Route: 048
  13. ENALAPRIL [Concomitant]
     Active Substance: ENALAPRIL
  14. ISOSORBIDE [Concomitant]
     Active Substance: ISOSORBIDE
     Route: 062
  15. PREGABALIN [Concomitant]
     Active Substance: PREGABALIN
     Dosage: IN THE MORNING AND EVENING
     Route: 048
  16. NITROGLYCERIN [Concomitant]
     Active Substance: NITROGLYCERIN
     Dosage: WHEN CHEST PAIN0.3MG UNKNOWN
     Route: 048
  17. UNSPECIFIED INGREDIENT [Concomitant]
     Active Substance: UNSPECIFIED INGREDIENT
     Dosage: DOSE UNKNOWN, AS REQUIRED
     Route: 048

REACTIONS (2)
  - Pneumonia bacterial [Fatal]
  - Ventricular fibrillation [Fatal]

NARRATIVE: CASE EVENT DATE: 20231126
